FAERS Safety Report 4886292-3 (Version None)
Quarter: 2006Q1

REPORT INFORMATION
  Report Type: 
  Country: None (occurrence: None)
  Receive Date: 20060120
  Receipt Date: 20050406
  Transmission Date: 20060701
  Serious: Yes (Hospitalization, Disabling, Other)
  Sender: FDA-Public Use
  Company Number: US-MERCK-0504USA01033

PATIENT
  Age: 61 Year
  Sex: Female
  Weight: 73 kg

DRUGS (14)
  1. VIOXX [Suspect]
     Indication: PAIN
     Route: 048
     Dates: start: 20001101, end: 20010901
  2. PREMARIN [Concomitant]
     Route: 065
  3. CORGARD [Concomitant]
     Route: 065
  4. MOBIC [Concomitant]
     Route: 065
  5. ALLEGRA [Concomitant]
     Route: 065
  6. CYANOCOBALAMIN [Concomitant]
     Route: 065
  7. DYAZIDE [Concomitant]
     Route: 065
  8. LOTREL [Concomitant]
     Route: 065
  9. TUSSIONEX (CHLORPHENIRAMINE POLISTIREX (+) HYDROCODONE POLISTIREX) [Concomitant]
     Route: 065
  10. ZYBAN [Concomitant]
     Route: 065
  11. PREVACID [Concomitant]
     Route: 065
  12. PLAVIX [Concomitant]
     Route: 065
  13. LOMOTIL [Concomitant]
     Route: 065
  14. ALLOPURINOL [Concomitant]
     Route: 065

REACTIONS (14)
  - ANAEMIA [None]
  - CEREBROVASCULAR ACCIDENT [None]
  - CHEST PAIN [None]
  - DEHYDRATION [None]
  - DIARRHOEA [None]
  - GASTROOESOPHAGEAL REFLUX DISEASE [None]
  - HYPERCHOLESTEROLAEMIA [None]
  - HYPERGLYCAEMIA [None]
  - HYPONATRAEMIA [None]
  - IRON DEFICIENCY [None]
  - NAUSEA [None]
  - PERIPHERAL VASCULAR DISORDER [None]
  - RENAL FAILURE ACUTE [None]
  - VOMITING [None]
